FAERS Safety Report 13646735 (Version 1)
Quarter: 2017Q2

REPORT INFORMATION
  Report Type: Spontaneous
  Country: US (occurrence: US)
  Receive Date: 20170612
  Receipt Date: 20170612
  Transmission Date: 20170830
  Serious: No
  Sender: FDA-Public Use
  Company Number: None

PATIENT
  Sex: Female

DRUGS (1)
  1. IBRANCE [Suspect]
     Active Substance: PALBOCICLIB
     Indication: BREAST CANCER
     Dosage: 125MG DAILY FOR 21 DAYS, THEN 7 DAYS OFF PO
     Route: 048
     Dates: start: 20170401

REACTIONS (4)
  - Anaemia [None]
  - Arthralgia [None]
  - Iron deficiency anaemia [None]
  - Onychoclasis [None]
